FAERS Safety Report 8303493-2 (Version None)
Quarter: 2012Q2

REPORT INFORMATION
  Report Type: 
  Country: None (occurrence: None)
  Receive Date: 20120418
  Receipt Date: 20120411
  Transmission Date: 20120825
  Serious: Yes (Hospitalization)
  Sender: FDA-Public Use
  Company Number: 2012SP011077

PATIENT
  Age: 58 Year
  Sex: Male

DRUGS (3)
  1. PEG-INTRON [Suspect]
     Indication: PRODUCT USED FOR UNKNOWN INDICATION
  2. VICTRELIS [Suspect]
     Indication: HEPATITIS C
     Dates: start: 20111101
  3. REBETOL [Suspect]
     Indication: PRODUCT USED FOR UNKNOWN INDICATION

REACTIONS (7)
  - SCAB [None]
  - SKIN HAEMORRHAGE [None]
  - LIPIDS ABNORMAL [None]
  - LOSS OF CONSCIOUSNESS [None]
  - SKIN DISORDER [None]
  - SKIN IRRITATION [None]
  - PRURITUS [None]
